FAERS Safety Report 10272792 (Version 3)
Quarter: 2014Q3

REPORT INFORMATION
  Report Type: Report from Study
  Country: JP (occurrence: JP)
  Receive Date: 20140702
  Receipt Date: 20140717
  Transmission Date: 20150326
  Serious: Yes (Hospitalization)
  Sender: FDA-Public Use
  Company Number: JP-ROCHE-1422671

PATIENT
  Age: 77 Year
  Sex: Male
  Weight: 50 kg

DRUGS (10)
  1. DOMPERIDONE [Concomitant]
     Active Substance: DOMPERIDONE
     Indication: GASTRITIS
     Route: 065
     Dates: start: 20130716
  2. CRAVIT [Concomitant]
     Active Substance: LEVOFLOXACIN
     Indication: CATARACT
     Route: 065
     Dates: start: 20131228
  3. TAKEPRON [Concomitant]
     Active Substance: LANSOPRAZOLE
     Indication: GASTRITIS
     Route: 065
     Dates: start: 20130716
  4. URSODEOXYCHOLIC ACID [Concomitant]
     Active Substance: URSODIOL
     Indication: ASPARTATE AMINOTRANSFERASE INCREASED
     Route: 065
     Dates: start: 20140212
  5. ZOLPIDEM [Concomitant]
     Active Substance: ZOLPIDEM\ZOLPIDEM TARTRATE
     Indication: INSOMNIA
     Route: 065
     Dates: start: 20130202
  6. FERROUS SULFATE [Concomitant]
     Active Substance: FERROUS SULFATE\FERROUS SULFATE, DRIED
     Indication: ANAEMIA
     Route: 065
     Dates: start: 20140319
  7. TRASTUZUMAB EMTANSINE [Suspect]
     Active Substance: ADO-TRASTUZUMAB EMTANSINE
     Indication: HER-2 POSITIVE GASTRIC CANCER
     Dosage: LAST DOSE PRIOR TO SAE: 23 APR 2014
     Route: 042
     Dates: start: 20140122, end: 20140521
  8. DIQUAS [Concomitant]
     Active Substance: DIQUAFOSOL TETRASODIUM
     Indication: CATARACT
     Route: 065
     Dates: start: 201001
  9. SEDEKOPAN [Concomitant]
     Indication: INSOMNIA
     Route: 065
     Dates: start: 20130202
  10. GASCON [Concomitant]
     Active Substance: DIMETHICONE
     Indication: GASTRITIS
     Route: 065
     Dates: start: 20130614

REACTIONS (1)
  - Hepatic encephalopathy [Recovered/Resolved]

NARRATIVE: CASE EVENT DATE: 20140423
